FAERS Safety Report 6631178-7 (Version None)
Quarter: 2010Q1

REPORT INFORMATION
  Report Type: 
  Country: None (occurrence: None)
  Receive Date: 20100309
  Receipt Date: 20100226
  Transmission Date: 20100710
  Serious: Yes (Life-Threatening, Other)
  Sender: FDA-Public Use
  Company Number: 002723

PATIENT
  Sex: Female
  Weight: 60 kg

DRUGS (3)
  1. KEPPRA [Suspect]
     Indication: PARTIAL SEIZURES
     Dosage: (250 MG BID ORAL), (500 MG BID ORAL)
     Route: 048
     Dates: start: 20090512, end: 20090501
  2. KEPPRA [Suspect]
     Indication: PARTIAL SEIZURES
     Dosage: (250 MG BID ORAL), (500 MG BID ORAL)
     Route: 048
     Dates: start: 20090520, end: 20090523
  3. DROSPIRENONE AND ETHINYL ESTRADIOL [Concomitant]

REACTIONS (11)
  - AMNESIA [None]
  - BRADYPHRENIA [None]
  - CONFUSIONAL STATE [None]
  - DEPRESSION [None]
  - DISORIENTATION [None]
  - FATIGUE [None]
  - HYPOKINESIA [None]
  - MOOD ALTERED [None]
  - SPEECH DISORDER [None]
  - SUICIDAL IDEATION [None]
  - VISUAL IMPAIRMENT [None]
